FAERS Safety Report 22078716 (Version 1)
Quarter: 2023Q1

REPORT INFORMATION
  Report Type: Spontaneous
  Country: US (occurrence: US)
  Receive Date: 20230309
  Receipt Date: 20230309
  Transmission Date: 20230418
  Serious: No
  Sender: FDA-Public Use
  Company Number: US-SA-SAC20230309000727

PATIENT
  Sex: Male

DRUGS (7)
  1. DUPIXENT [Suspect]
     Active Substance: DUPILUMAB
     Indication: Dermatitis atopic
     Dosage: 300 MG, QOW
     Route: 058
     Dates: start: 20221018
  2. HYDROCORTISONE SODIUM SUCCINATE [Concomitant]
     Active Substance: HYDROCORTISONE SODIUM SUCCINATE
  3. IBUPROFEN [Concomitant]
     Active Substance: IBUPROFEN
  4. PIMECROLIMUS [Concomitant]
     Active Substance: PIMECROLIMUS
  5. TACROLIMUS [Concomitant]
     Active Substance: TACROLIMUS
  6. BETAMETH [BETAMETHASONE VALERATE] [Concomitant]
  7. CHLORHEXIDINE GLUCONATE [Concomitant]
     Active Substance: CHLORHEXIDINE GLUCONATE

REACTIONS (1)
  - Dry skin [Unknown]
